FAERS Safety Report 4744968-2 (Version None)
Quarter: 2005Q3

REPORT INFORMATION
  Report Type: 
  Country: None (occurrence: None)
  Receive Date: 20050815
  Receipt Date: 20050803
  Transmission Date: 20060218
  Serious: Yes (Death)
  Sender: FDA-Public Use
  Company Number: US-BRISTOL-MYERS SQUIBB COMPANY-13062120

PATIENT
  Age: 56 Year
  Sex: Male

DRUGS (3)
  1. CEFEPIME HCL [Suspect]
     Indication: PNEUMONIA KLEBSIELLA
  2. AMPHOTERICIN B [Suspect]
  3. VANCOMYCIN [Suspect]

REACTIONS (1)
  - MULTI-ORGAN FAILURE [None]
